FAERS Safety Report 13997641 (Version 1)
Quarter: 2017Q3

REPORT INFORMATION
  Report Type: Spontaneous
  Country: IT (occurrence: IT)
  Receive Date: 20170921
  Receipt Date: 20170921
  Transmission Date: 20171128
  Serious: Yes (Other)
  Sender: FDA-Public Use
  Company Number: IT-JNJFOC-20170914174

PATIENT
  Age: 20 Year
  Sex: Female

DRUGS (4)
  1. OLYSIO [Suspect]
     Active Substance: SIMEPREVIR
     Indication: PRODUCT USED FOR UNKNOWN INDICATION
     Route: 048
     Dates: start: 20161117, end: 20170113
  2. CITALOPRAM MYLAN [Concomitant]
     Active Substance: CITALOPRAM HYDROBROMIDE
     Route: 048
  3. PEGASYS [Suspect]
     Active Substance: PEGINTERFERON ALFA-2A
     Indication: PRODUCT USED FOR UNKNOWN INDICATION
     Route: 058
     Dates: start: 20161117, end: 20170113
  4. REBETOL [Suspect]
     Active Substance: RIBAVIRIN
     Indication: PRODUCT USED FOR UNKNOWN INDICATION
     Route: 048
     Dates: start: 20161117, end: 20170113

REACTIONS (8)
  - Asthenia [Unknown]
  - Influenza like illness [Unknown]
  - Memory impairment [Unknown]
  - Irritability [Unknown]
  - Amenorrhoea [Unknown]
  - Decreased appetite [Unknown]
  - Photosensitivity reaction [Unknown]
  - Mood altered [Unknown]

NARRATIVE: CASE EVENT DATE: 20170113
